FAERS Safety Report 20546945 (Version 2)
Quarter: 2022Q2

REPORT INFORMATION
  Report Type: Spontaneous
  Country: BE (occurrence: BE)
  Receive Date: 20220303
  Receipt Date: 20220523
  Transmission Date: 20220720
  Serious: Yes (Other)
  Sender: FDA-Public Use
  Company Number: BE-MLMSERVICE-20220221-3382179-1

PATIENT
  Age: 74 Year
  Sex: Female

DRUGS (3)
  1. OXALIPLATIN [Suspect]
     Active Substance: OXALIPLATIN
     Indication: Colorectal adenocarcinoma
     Dosage: VIA TIVAD
  2. OXALIPLATIN [Suspect]
     Active Substance: OXALIPLATIN
     Dosage: VIA PERIPHERALLY INSERTED CENTRAL CATHETER
  3. FLUOROURACIL [Concomitant]
     Active Substance: FLUOROURACIL
     Indication: Colorectal adenocarcinoma

REACTIONS (10)
  - Tissue injury [Recovered/Resolved]
  - Catheter site extravasation [Recovered/Resolved]
  - Medical device site induration [Recovered/Resolved]
  - Hyperaemia [Recovered/Resolved]
  - Telangiectasia [Recovered/Resolved]
  - Erythema [Recovered/Resolved]
  - Catheter site cellulitis [Recovered/Resolved]
  - Speech disorder [Unknown]
  - Muscular weakness [Unknown]
  - Pain [Recovered/Resolved]
